FAERS Safety Report 8058916-3 (Version None)
Quarter: 2012Q1

REPORT INFORMATION
  Report Type: 
  Country: None (occurrence: None)
  Receive Date: 20120120
  Receipt Date: 20110927
  Transmission Date: 20120608
  Serious: Yes (Other)
  Sender: FDA-Public Use
  Company Number: US-BRISTOL-MYERS SQUIBB COMPANY-16102204

PATIENT
  Sex: Male

DRUGS (1)
  1. YERVOY [Suspect]
     Dosage: NDC#YERVOY40ML-00003232822,200MG VIAL:YERVOY 2 10MLVIAL
     Dates: start: 20110801, end: 20110801

REACTIONS (1)
  - NEOPLASM MALIGNANT [None]
